FAERS Safety Report 11616841 (Version 3)
Quarter: 2015Q4

REPORT INFORMATION
  Report Type: Spontaneous
  Country: US (occurrence: US)
  Receive Date: 20151009
  Receipt Date: 20151107
  Transmission Date: 20160304
  Serious: Yes (Disabling, Other)
  Sender: FDA-Public Use
  Company Number: US-CELGENEUS-USA-2015091276

PATIENT
  Sex: Male

DRUGS (7)
  1. ARANESP [Concomitant]
     Active Substance: DARBEPOETIN ALFA
     Indication: FATIGUE
  2. PREDNISONE. [Concomitant]
     Active Substance: PREDNISONE
     Indication: STEROID THERAPY
     Route: 048
     Dates: start: 20150910
  3. DANAZOL. [Concomitant]
     Active Substance: DANAZOL
     Indication: STEROID THERAPY
     Route: 065
     Dates: start: 20151009
  4. REVLIMID [Suspect]
     Active Substance: LENALIDOMIDE
     Indication: LYMPHOPROLIFERATIVE DISORDER
  5. REVLIMID [Suspect]
     Active Substance: LENALIDOMIDE
     Indication: MYELODYSPLASTIC SYNDROME
     Dosage: 5 MILLIGRAM
     Route: 048
     Dates: start: 20150715
  6. PREDNISONE. [Concomitant]
     Active Substance: PREDNISONE
     Dosage: 400 MILLIGRAM
     Route: 048
     Dates: start: 20151009
  7. ARANESP [Concomitant]
     Active Substance: DARBEPOETIN ALFA
     Indication: FULL BLOOD COUNT ABNORMAL
     Route: 058
     Dates: start: 20150728, end: 20150908

REACTIONS (5)
  - Malaise [Unknown]
  - Fatigue [Unknown]
  - Decreased appetite [Unknown]
  - Platelet count decreased [Not Recovered/Not Resolved]
  - Constipation [Recovering/Resolving]

NARRATIVE: CASE EVENT DATE: 2015
